FAERS Safety Report 24694533 (Version 1)
Quarter: 2024Q4

REPORT INFORMATION
  Report Type: Spontaneous
  Country: BE (occurrence: BE)
  Receive Date: 20241204
  Receipt Date: 20241204
  Transmission Date: 20250115
  Serious: Yes (Other)
  Sender: JOHNSON AND JOHNSON
  Company Number: None

PATIENT
  Age: 11 Year
  Sex: Male

DRUGS (1)
  1. RISPERDAL [Suspect]
     Active Substance: RISPERIDONE
     Indication: Intentional self-injury
     Dosage: , ACUTE ON CHRONIC?MAX 100 ML
     Route: 048

REACTIONS (5)
  - Somnolence [Not Recovered/Not Resolved]
  - Hypotension [Not Recovered/Not Resolved]
  - Miosis [Not Recovered/Not Resolved]
  - Intentional overdose [Not Recovered/Not Resolved]
  - Overdose [Not Recovered/Not Resolved]
